FAERS Safety Report 10079570 (Version 1)
Quarter: 2014Q2

REPORT INFORMATION
  Report Type: Spontaneous
  Country: US (occurrence: None)
  Receive Date: 20140414
  Receipt Date: 20140414
  Transmission Date: 20141212
  Serious: Yes (Other)
  Sender: FDA-Public Use
  Company Number: None

PATIENT
  Age: 51 Year
  Sex: Female
  Weight: 58.97 kg

DRUGS (1)
  1. CIPRO [Suspect]
     Indication: DIVERTICULITIS
     Route: 048
     Dates: start: 20140214, end: 20140222

REACTIONS (8)
  - Rash [None]
  - Hypertension [None]
  - Palpitations [None]
  - Hypersensitivity [None]
  - Muscular weakness [None]
  - Arthralgia [None]
  - Balance disorder [None]
  - Headache [None]
